FAERS Safety Report 6788039-2 (Version None)
Quarter: 2010Q2

REPORT INFORMATION
  Report Type: 
  Country: None (occurrence: None)
  Receive Date: 20100621
  Receipt Date: 20100607
  Transmission Date: 20101027
  Serious: Yes (Hospitalization)
  Sender: FDA-Public Use
  Company Number: 8054935

PATIENT
  Sex: Male
  Weight: 92.1 kg

DRUGS (20)
  1. CERTOLIZUMAB PEGOL [Suspect]
     Indication: RHEUMATOID ARTHRITIS
     Dosage: 400 MG 1X2 WEEKS SUBCUTANEOUS, SUBCUTANEOUS
     Route: 058
     Dates: start: 20091001, end: 20091104
  2. CERTOLIZUMAB PEGOL [Suspect]
     Indication: RHEUMATOID ARTHRITIS
     Dosage: 400 MG 1X2 WEEKS SUBCUTANEOUS, SUBCUTANEOUS
     Route: 058
     Dates: start: 20091202
  3. HYDROCODONE [Concomitant]
  4. METHOTREXATE [Concomitant]
  5. FOLIC ACID [Concomitant]
  6. POTASSIUM [Concomitant]
  7. FURSOMIDE [Concomitant]
  8. SYNTHROID [Concomitant]
  9. ADVAIR DISKUS 100/50 [Concomitant]
  10. CLONIDINE [Concomitant]
  11. FLOMAX [Concomitant]
  12. CELEXA [Concomitant]
  13. INSULIN [Concomitant]
  14. LANTUS [Concomitant]
  15. LISINOPRIL [Concomitant]
  16. ALLOPURINOL [Concomitant]
  17. DESOXIMETASONE [Concomitant]
  18. MULTI-VITAMINS [Concomitant]
  19. CYANOCOBALAMIN [Concomitant]
  20. CALCIUM W/VITAMIN D /00188401/ [Concomitant]

REACTIONS (9)
  - BRONCHITIS [None]
  - EOSINOPHIL PERCENTAGE DECREASED [None]
  - GLUCOSE URINE PRESENT [None]
  - HAEMOGLOBIN DECREASED [None]
  - LYMPHOCYTE PERCENTAGE DECREASED [None]
  - MONOCYTE COUNT DECREASED [None]
  - NEUTROPHIL PERCENTAGE INCREASED [None]
  - RED BLOOD CELL COUNT DECREASED [None]
  - URINE POTASSIUM INCREASED [None]
